FAERS Safety Report 7266970-1 (Version None)
Quarter: 2011Q1

REPORT INFORMATION
  Report Type: 
  Country: None (occurrence: None)
  Receive Date: 20110201
  Receipt Date: 20110125
  Transmission Date: 20110831
  Serious: Yes (Death)
  Sender: FDA-Public Use
  Company Number: US-JNJFOC-20110107168

PATIENT
  Sex: Male
  Weight: 81.65 kg

DRUGS (3)
  1. INVEGA [Suspect]
     Route: 048
  2. INVEGA [Suspect]
     Route: 048
  3. INVEGA [Suspect]
     Indication: SCHIZOPHRENIA
     Route: 048

REACTIONS (6)
  - DRUG INEFFECTIVE [None]
  - COMPLETED SUICIDE [None]
  - NEPHROLITHIASIS [None]
  - WEIGHT INCREASED [None]
  - HALLUCINATION, AUDITORY [None]
  - EXPIRED DRUG ADMINISTERED [None]
